FAERS Safety Report 15916788 (Version 1)
Quarter: 2019Q1

REPORT INFORMATION
  Report Type: Report from Study
  Country: CN (occurrence: CN)
  Receive Date: 20190205
  Receipt Date: 20190205
  Transmission Date: 20190417
  Serious: Yes (Other)
  Sender: FDA-Public Use
  Company Number: CN-ROCHE-2252711

PATIENT

DRUGS (6)
  1. CALCIUM FOLINATE [Suspect]
     Active Substance: LEUCOVORIN CALCIUM
     Indication: COLORECTAL CANCER
     Dosage: 200M G/M2
     Route: 041
  2. VARDENAFIL HYDROCHLORIDE. [Suspect]
     Active Substance: VARDENAFIL HYDROCHLORIDE
     Indication: COLORECTAL CANCER
     Route: 041
  3. 5-FLUOROURACIL [Suspect]
     Active Substance: FLUOROURACIL
     Dosage: 2400M G/M2
     Route: 041
  4. 5-FLUOROURACIL [Suspect]
     Active Substance: FLUOROURACIL
     Indication: COLORECTAL CANCER
     Dosage: 400M G/M2
     Route: 041
  5. CAPECITABINE. [Suspect]
     Active Substance: CAPECITABINE
     Indication: COLORECTAL CANCER
     Route: 065
  6. VARDENAFIL HYDROCHLORIDE. [Suspect]
     Active Substance: VARDENAFIL HYDROCHLORIDE
     Route: 041

REACTIONS (5)
  - Nausea [Unknown]
  - Vomiting [Unknown]
  - White blood cell count decreased [Unknown]
  - Mucosal inflammation [Unknown]
  - Fatigue [Unknown]
